FAERS Safety Report 24455104 (Version 2)
Quarter: 2024Q4

REPORT INFORMATION
  Report Type: Spontaneous
  Country: AT (occurrence: AT)
  Receive Date: 20241017
  Receipt Date: 20241018
  Transmission Date: 20250114
  Serious: No
  Sender: ROCHE
  Company Number: AT-BAXTER-2023BAX039347

PATIENT
  Sex: Male

DRUGS (6)
  1. RITUXIMAB [Suspect]
     Active Substance: RITUXIMAB
     Indication: Mantle cell lymphoma
     Dosage: FIRST LINE THERAPY, 4 CYCLES OF R-MINICHOP (CYCLE TIME: 21 DAYS)
     Route: 065
     Dates: start: 201901, end: 201903
  2. DOXORUBICIN [Suspect]
     Active Substance: DOXORUBICIN
     Indication: Mantle cell lymphoma
     Dosage: FIRST LINE THERAPY, 4 CYCLES OF R-MINICHOP (CYCLE TIME: 21 DAYS)
     Route: 065
     Dates: start: 201901, end: 201903
  3. PREDNISONE [Suspect]
     Active Substance: PREDNISONE
     Indication: Mantle cell lymphoma
     Dosage: FIRST LINE THERAPY, 4 CYCLES OF R-MINICHOP (CYCLE TIME: 21 DAYS)
     Route: 065
     Dates: start: 201901, end: 201903
  4. VINCRISTINE [Suspect]
     Active Substance: VINCRISTINE
     Indication: Mantle cell lymphoma
     Dosage: FIRST LINE THERAPY, 4 CYCLES OF R-MINICHOP (CYCLE TIME: 21 DAYS)
     Route: 065
     Dates: start: 201901, end: 201903
  5. CYCLOPHOSPHAMIDE [Suspect]
     Active Substance: CYCLOPHOSPHAMIDE
     Indication: Mantle cell lymphoma
     Dosage: FIRST LINE THERAPY, 4 CYCLES OF R-MINICHOP (CYCLE TIME: 21 DAYS)
     Route: 065
     Dates: start: 201901, end: 201903
  6. GRANULOCYTE COLONY-STIMULATING FACTOR NOS [Concomitant]
     Active Substance: GRANULOCYTE COLONY-STIMULATING FACTOR NOS
     Dosage: UNK
     Dates: start: 201901, end: 201903

REACTIONS (1)
  - Therapy partial responder [Unknown]

NARRATIVE: CASE EVENT DATE: 20190301
